FAERS Safety Report 9140099 (Version 1)
Quarter: 2013Q1

REPORT INFORMATION
  Report Type: Spontaneous
  Country: FR (occurrence: FR)
  Receive Date: 20130305
  Receipt Date: 20130305
  Transmission Date: 20140127
  Serious: Yes (Life-Threatening)
  Sender: FDA-Public Use
  Company Number: CA-ASTRAZENECA-2013SE14317

PATIENT
  Sex: Male

DRUGS (1)
  1. ATACAND [Suspect]
     Route: 048

REACTIONS (6)
  - Suicide attempt [Recovered/Resolved]
  - Depression [Unknown]
  - Anxiety [Unknown]
  - Decreased appetite [Unknown]
  - Insomnia [Unknown]
  - Adverse drug reaction [Unknown]
